FAERS Safety Report 4615403-X (Version None)
Quarter: 2005Q2

REPORT INFORMATION
  Report Type: 
  Country: None (occurrence: None)
  Receive Date: 20050311
  Receipt Date: 20041230
  Transmission Date: 20051028
  Serious: No
  Sender: FDA-Public Use
  Company Number: 2004-BP-06987BP

PATIENT
  Age: 75 Year
  Sex: Female
  Weight: 44.5 kg

DRUGS (9)
  1. SPIRIVA [Suspect]
     Indication: BRONCHITIS
     Dosage: 18 MCG (18 MCG), IH
     Route: 055
     Dates: start: 20040720, end: 20040913
  2. SPIRIVA [Suspect]
     Indication: CARDIAC FAILURE CONGESTIVE
     Dosage: 18 MCG (18 MCG), IH
     Route: 055
     Dates: start: 20040720, end: 20040913
  3. SPIRIVA [Suspect]
     Indication: CHRONIC OBSTRUCTIVE PULMONARY DISEASE
     Dosage: 18 MCG (18 MCG), IH
     Route: 055
     Dates: start: 20040720, end: 20040913
  4. DIGOXIN [Concomitant]
  5. FUROSEMIDE [Concomitant]
  6. POTASSIUM CHLORIDE [Concomitant]
  7. ALBUTEROL [Concomitant]
  8. ATROVENT [Concomitant]
  9. OXYGEN (OXYGEN) [Concomitant]

REACTIONS (6)
  - DIZZINESS [None]
  - DRY MOUTH [None]
  - DYSPHONIA [None]
  - FALL [None]
  - VERTIGO [None]
  - VISION BLURRED [None]
